FAERS Safety Report 8152288-1 (Version None)
Quarter: 2012Q1

REPORT INFORMATION
  Report Type: 
  Country: None (occurrence: None)
  Receive Date: 20120221
  Receipt Date: 20120216
  Transmission Date: 20120608
  Serious: No
  Sender: FDA-Public Use
  Company Number: US-PFIZER INC-2012042531

PATIENT
  Sex: Female
  Weight: 68 kg

DRUGS (3)
  1. XANAX [Concomitant]
     Indication: STRESS
     Dosage: UNK
  2. CHANTIX [Suspect]
     Indication: SMOKING CESSATION THERAPY
     Dosage: 0.5 MG, 1X/DAY
     Route: 048
     Dates: start: 20120208
  3. CHANTIX [Suspect]
     Dosage: 1 MG, 2X/DAY
     Route: 048

REACTIONS (5)
  - ANGER [None]
  - EMOTIONAL DISORDER [None]
  - STRESS [None]
  - TOBACCO WITHDRAWAL SYMPTOMS [None]
  - BRUXISM [None]
